FAERS Safety Report 6013278-8 (Version None)
Quarter: 2008Q4

REPORT INFORMATION
  Report Type: 
  Country: None (occurrence: None)
  Receive Date: 20081218
  Receipt Date: 20081218
  Transmission Date: 20090506
  Serious: Yes (Other)
  Sender: FDA-Public Use
  Company Number: None

PATIENT
  Age: 69 Year
  Sex: Female
  Weight: 68.0396 kg

DRUGS (7)
  1. METFORMIN ER 500MG SUN PHARMACEUTICAL [Suspect]
     Indication: DIABETES MELLITUS
     Dosage: 1000MG AM PO 500 MG PM PO
     Route: 048
     Dates: start: 20081111, end: 20081115
  2. ENBREL [Concomitant]
  3. SYNTHROID [Concomitant]
  4. VYTORIN [Concomitant]
  5. PREDNISONE [Concomitant]
  6. MICARDIS [Concomitant]
  7. AZATHIOPRINE [Concomitant]

REACTIONS (3)
  - BLOOD GLUCOSE INCREASED [None]
  - DEPRESSION [None]
  - PRODUCT QUALITY ISSUE [None]
